FAERS Safety Report 25163272 (Version 1)
Quarter: 2025Q2

REPORT INFORMATION
  Report Type: Report from Study
  Country: US (occurrence: US)
  Receive Date: 20250404
  Receipt Date: 20250404
  Transmission Date: 20250717
  Serious: Yes (Death)
  Sender: PFIZER
  Company Number: US-PFIZER INC-PV202500000510

PATIENT
  Age: 81 Year
  Sex: Male

DRUGS (4)
  1. VYNDAMAX [Suspect]
     Active Substance: TAFAMIDIS
     Indication: Cardiac amyloidosis
     Dosage: 61 MG, 1X/DAY
     Route: 048
     Dates: start: 202408
  2. VYNDAMAX [Suspect]
     Active Substance: TAFAMIDIS
     Dosage: 61 MG, 1X/DAY
     Route: 048
  3. OXYCODONE [Concomitant]
     Active Substance: OXYCODONE
  4. ALPRAZOLAM [Concomitant]
     Active Substance: ALPRAZOLAM

REACTIONS (2)
  - Death [Fatal]
  - Somnolence [Unknown]

NARRATIVE: CASE EVENT DATE: 20240101
